FAERS Safety Report 21206122 (Version 1)
Quarter: 2022Q3

REPORT INFORMATION
  Report Type: Report from Study
  Country: JP (occurrence: JP)
  Receive Date: 20220812
  Receipt Date: 20220812
  Transmission Date: 20221027
  Serious: Yes (Other)
  Sender: FDA-Public Use
  Company Number: JP-Nexus Pharma-000129

PATIENT

DRUGS (2)
  1. BUSULFAN [Suspect]
     Active Substance: BUSULFAN
     Indication: Neuroblastoma
  2. MELPHALAN [Suspect]
     Active Substance: MELPHALAN
     Indication: Neuroblastoma

REACTIONS (2)
  - Renal impairment [Unknown]
  - Gastrointestinal mucosal disorder [Unknown]
